FAERS Safety Report 25230446 (Version 1)
Quarter: 2025Q2

REPORT INFORMATION
  Report Type: Report from Study
  Country: GB (occurrence: GB)
  Receive Date: 20250423
  Receipt Date: 20250423
  Transmission Date: 20250717
  Serious: Yes (Other)
  Sender: NOVARTIS
  Company Number: GB-002147023-NVSC2025GB066185

PATIENT
  Sex: Female

DRUGS (1)
  1. COSENTYX [Suspect]
     Active Substance: SECUKINUMAB
     Indication: Psoriatic arthropathy
     Dosage: 300 MG, QMO
     Route: 058

REACTIONS (6)
  - Psoriatic arthropathy [Unknown]
  - Mastitis [Unknown]
  - Pain [Unknown]
  - Osteoarthritis [Unknown]
  - Hereditary non-polyposis colorectal cancer syndrome [Unknown]
  - Drug ineffective [Unknown]
